FAERS Safety Report 21383807 (Version 1)
Quarter: 2022Q3

REPORT INFORMATION
  Report Type: Spontaneous
  Country: JP (occurrence: JP)
  Receive Date: 20220928
  Receipt Date: 20220928
  Transmission Date: 20221027
  Serious: Yes (Other)
  Sender: FDA-Public Use
  Company Number: JP-AUROBINDO-AUR-APL-2022-038599

PATIENT
  Age: 78 Year
  Sex: Male

DRUGS (4)
  1. FOLOTYN [Suspect]
     Active Substance: PRALATREXATE
     Indication: Anaplastic large-cell lymphoma
     Dosage: UNK
     Route: 042
  2. FORODESINE HYDROCHLORIDE [Suspect]
     Active Substance: FORODESINE HYDROCHLORIDE
     Indication: Anaplastic large-cell lymphoma
     Dosage: UNK
     Route: 048
  3. ROMIDEPSIN [Concomitant]
     Active Substance: ROMIDEPSIN
     Indication: Product used for unknown indication
     Dosage: UNK
     Route: 065
  4. BRENTUXIMAB VEDOTIN [Concomitant]
     Active Substance: BRENTUXIMAB VEDOTIN
     Indication: Product used for unknown indication
     Dosage: UNK
     Route: 065

REACTIONS (1)
  - Malignant neoplasm progression [Unknown]
